FAERS Safety Report 16013505 (Version 2)
Quarter: 2019Q2

REPORT INFORMATION
  Report Type: Report from Study
  Country: US (occurrence: US)
  Receive Date: 20190227
  Receipt Date: 20190430
  Transmission Date: 20190711
  Serious: Yes (Hospitalization)
  Sender: FDA-Public Use
  Company Number: US-EISAI MEDICAL RESEARCH-EC-2019-050236

PATIENT
  Age: 58 Year
  Sex: Male
  Weight: 71 kg

DRUGS (23)
  1. LENVIMA [Suspect]
     Active Substance: LENVATINIB
     Indication: RENAL CANCER
     Route: 048
     Dates: start: 20181204, end: 201902
  2. OXYCODONE HYDROCHLORIDE. [Concomitant]
     Active Substance: OXYCODONE HYDROCHLORIDE
  3. OMEPRAZOLE. [Concomitant]
     Active Substance: OMEPRAZOLE
  4. AQUAPHOR [Concomitant]
     Active Substance: PETROLATUM
  5. CARVEDILOL. [Concomitant]
     Active Substance: CARVEDILOL
  6. OLANZAPINE. [Concomitant]
     Active Substance: OLANZAPINE
  7. FLUDROCORTISONE ACETATE. [Concomitant]
     Active Substance: FLUDROCORTISONE ACETATE
  8. AUGMENTIN [Concomitant]
     Active Substance: AMOXICILLIN\CLAVULANATE POTASSIUM
  9. LORAZEPAM. [Concomitant]
     Active Substance: LORAZEPAM
  10. DRONABINOL. [Concomitant]
     Active Substance: DRONABINOL
  11. CABOMETYX [Concomitant]
     Active Substance: CABOZANTINIB S-MALATE
  12. LENVIMA [Suspect]
     Active Substance: LENVATINIB
     Route: 048
     Dates: start: 201902
  13. MIRALAX [Concomitant]
     Active Substance: POLYETHYLENE GLYCOL 3350
  14. PHOSPHORUS [Concomitant]
     Active Substance: PHOSPHORUS
  15. METOPROLOL SUCCINATE. [Concomitant]
     Active Substance: METOPROLOL SUCCINATE
  16. ATORVASTATIN [Concomitant]
     Active Substance: ATORVASTATIN
  17. AFINITOR [Concomitant]
     Active Substance: EVEROLIMUS
  18. DEXAMETHASONE. [Concomitant]
     Active Substance: DEXAMETHASONE
  19. ONDANSETRON [Concomitant]
     Active Substance: ONDANSETRON
  20. MELOXICAM. [Concomitant]
     Active Substance: MELOXICAM
  21. HYDROCORTISONE. [Concomitant]
     Active Substance: HYDROCORTISONE
  22. SERTRALINE [Concomitant]
     Active Substance: SERTRALINE HYDROCHLORIDE
  23. MUPIROCIN. [Concomitant]
     Active Substance: MUPIROCIN

REACTIONS (13)
  - Ejection fraction decreased [Unknown]
  - Skin odour abnormal [Unknown]
  - Rash [Not Recovered/Not Resolved]
  - Oedema peripheral [Unknown]
  - Nausea [Unknown]
  - Pain [Unknown]
  - Blood pressure fluctuation [Recovering/Resolving]
  - Decreased appetite [Unknown]
  - Rhinitis atrophic [Recovering/Resolving]
  - Blood pressure increased [Unknown]
  - Dry skin [Unknown]
  - Fatigue [Not Recovered/Not Resolved]
  - Epistaxis [Recovering/Resolving]

NARRATIVE: CASE EVENT DATE: 20181230
